FAERS Safety Report 4999103-2 (Version None)
Quarter: 2006Q2

REPORT INFORMATION
  Report Type: 
  Country: None (occurrence: None)
  Receive Date: 20060509
  Receipt Date: 20060421
  Transmission Date: 20061013
  Serious: Yes (Other)
  Sender: FDA-Public Use
  Company Number: US200603005741

PATIENT
  Age: 60 Year
  Sex: Female
  Weight: 59.9 kg

DRUGS (18)
  1. CYMBALTA [Suspect]
     Indication: NEUROPATHY
     Dates: start: 20060101, end: 20060210
  2. PREDNISONE TAB [Concomitant]
  3. LISINOPRIL [Concomitant]
  4. CELLCEPT [Concomitant]
  5. CYCLOSPORINE [Concomitant]
  6. MULTIVITAMIN [Concomitant]
  7. MAG-OX (MAGNESIUM OXIDE) [Concomitant]
  8. PEPCID [Concomitant]
  9. PRAVACHOL [Concomitant]
  10. BACTRIM [Concomitant]
  11. NEURONTIN [Concomitant]
  12. SYNTHROID [Concomitant]
  13. CALCIUM (CALCIUM) [Concomitant]
  14. NPH INSULIN [Concomitant]
  15. INSULIN, REGULAR (INSULIN) [Concomitant]
  16. ASPIRIN [Concomitant]
  17. ALLOPURINOL [Concomitant]
  18. LEXAPRO [Concomitant]

REACTIONS (1)
  - HEPATITIS [None]
